FAERS Safety Report 24250852 (Version 1)
Quarter: 2024Q3

REPORT INFORMATION
  Report Type: Report from Study
  Country: US (occurrence: US)
  Receive Date: 20240826
  Receipt Date: 20240826
  Transmission Date: 20241016
  Serious: Yes (Other)
  Sender: SANDOZ
  Company Number: US-NOVPHSZ-PHEH2019US019221

PATIENT
  Sex: Female
  Weight: 68.934 kg

DRUGS (4)
  1. TREPROSTINIL [Suspect]
     Active Substance: TREPROSTINIL
     Dosage: (163NG/KG/MIN), CONTINUOUSLY
     Route: 042
     Dates: start: 20190410
  2. TREPROSTINIL [Suspect]
     Active Substance: TREPROSTINIL
     Dosage: (144 NG/KG/MIN), CONTINUOUSLY
     Route: 042
     Dates: start: 20190410
  3. TREPROSTINIL [Suspect]
     Active Substance: TREPROSTINIL
     Indication: Pulmonary arterial hypertension
     Dosage: (144 NG/KG/MIN), CONTINUOUSLY
     Route: 042
     Dates: start: 20190410
  4. OPSUMIT [Concomitant]
     Active Substance: MACITENTAN
     Indication: Product used for unknown indication
     Route: 065

REACTIONS (5)
  - Heavy menstrual bleeding [Unknown]
  - Vertigo [Unknown]
  - Vomiting [Unknown]
  - Fatigue [Unknown]
  - Nasopharyngitis [Unknown]
